FAERS Safety Report 14142081 (Version 1)
Quarter: 2017Q4

REPORT INFORMATION
  Report Type: Spontaneous
  Country: AU (occurrence: AU)
  Receive Date: 20171030
  Receipt Date: 20171030
  Transmission Date: 20180321
  Serious: Yes (Life-Threatening)
  Sender: FDA-Public Use
  Company Number: AU-TEVA-812173ISR

PATIENT
  Sex: Male

DRUGS (1)
  1. ROCON [Suspect]
     Active Substance: ROCURONIUM BROMIDE
     Indication: NEUROMUSCULAR BLOCKADE
     Dosage: ONCE ONLY
     Route: 042
     Dates: start: 20170919, end: 20170919

REACTIONS (3)
  - Drug ineffective [Recovered/Resolved]
  - Therapy partial responder [Recovered/Resolved]
  - Drug effect incomplete [Recovered/Resolved]

NARRATIVE: CASE EVENT DATE: 20170919
